FAERS Safety Report 21022028 (Version 1)
Quarter: 2022Q2

REPORT INFORMATION
  Report Type: Spontaneous
  Country: US (occurrence: None)
  Receive Date: 20220628
  Receipt Date: 20220628
  Transmission Date: 20220721
  Serious: Yes (Hospitalization)
  Sender: FDA-Public Use
  Company Number: None

PATIENT
  Sex: Male

DRUGS (1)
  1. IBRANCE [Suspect]
     Active Substance: PALBOCICLIB
     Indication: Nasopharyngeal cancer
     Dosage: 125MG DAILY FOR 21 DAYS ORAL?
     Route: 048
     Dates: start: 20210226

REACTIONS (2)
  - Hospitalisation [None]
  - Pneumatosis [None]
